FAERS Safety Report 4267240-6 (Version None)
Quarter: 2004Q1

REPORT INFORMATION
  Report Type: 
  Country: None (occurrence: None)
  Receive Date: 20040107
  Receipt Date: 20031223
  Transmission Date: 20041129
  Serious: Yes (Hospitalization)
  Sender: FDA-Public Use
  Company Number: 203633

PATIENT
  Age: 57 Year
  Sex: Female

DRUGS (6)
  1. HERCEPTIN [Suspect]
     Indication: BREAST CANCER METASTATIC
     Dosage: SEE IMAGE
     Route: 042
     Dates: start: 20020301, end: 20030801
  2. HERCEPTIN [Suspect]
     Indication: BREAST CANCER METASTATIC
     Dosage: SEE IMAGE
     Route: 042
     Dates: start: 20030801, end: 20030801
  3. HERCEPTIN [Suspect]
     Indication: BREAST CANCER METASTATIC
     Dosage: SEE IMAGE
     Route: 042
     Dates: start: 20031029
  4. TAXOL [Concomitant]
  5. PAIN MEDICATION NOS (ANALGESIC NOS) [Concomitant]
  6. DECADRON [Concomitant]

REACTIONS (2)
  - DRUG INEFFECTIVE [None]
  - PSYCHOTIC DISORDER [None]
